FAERS Safety Report 6804680-2 (Version None)
Quarter: 2010Q2

REPORT INFORMATION
  Report Type: 
  Country: None (occurrence: None)
  Receive Date: 20100628
  Receipt Date: 20070412
  Transmission Date: 20101027
  Serious: No
  Sender: FDA-Public Use
  Company Number: US-PFIZER INC-2007034358

PATIENT
  Sex: Female
  Weight: 90.72 kg

DRUGS (11)
  1. XALATAN [Suspect]
     Indication: OPEN ANGLE GLAUCOMA
     Route: 047
     Dates: start: 20060101
  2. TIMOPTIC [Concomitant]
     Route: 047
  3. COREG [Concomitant]
     Indication: HYPERTENSION
  4. COREG [Concomitant]
     Indication: MITRAL VALVE PROLAPSE
  5. EVISTA [Concomitant]
  6. ACETYLSALICYLIC ACID [Concomitant]
  7. PRILOSEC [Concomitant]
     Indication: GASTROOESOPHAGEAL REFLUX DISEASE
  8. CYMBALTA [Concomitant]
  9. OSCAL [Concomitant]
  10. COLACE [Concomitant]
  11. LASIX [Concomitant]

REACTIONS (4)
  - DARK CIRCLES UNDER EYES [None]
  - GROWTH OF EYELASHES [None]
  - LACRIMATION INCREASED [None]
  - VISION BLURRED [None]
